FAERS Safety Report 7406610-1 (Version None)
Quarter: 2011Q2

REPORT INFORMATION
  Report Type: 
  Country: None (occurrence: None)
  Receive Date: 20110411
  Receipt Date: 20110331
  Transmission Date: 20111010
  Serious: Yes (Hospitalization)
  Sender: FDA-Public Use
  Company Number: BR-ASTRAZENECA-2010SE29818

PATIENT
  Age: 64 Year
  Sex: Male

DRUGS (5)
  1. ASPIRIN [Concomitant]
     Dosage: TWO TIMES A DAY
     Route: 048
     Dates: start: 20070101
  2. ATACAND [Suspect]
     Route: 048
     Dates: start: 20070101
  3. ATACAND HCT [Suspect]
     Dosage: 16/12.5 MG TWO TIMES A DAY
     Route: 048
     Dates: start: 20070101, end: 20070101
  4. CRESTOR [Suspect]
     Indication: HYPERCHOLESTEROLAEMIA
     Route: 048
  5. BETALOR [Concomitant]
     Dosage: 5/25 MG DAILY
     Route: 048
     Dates: start: 20070101

REACTIONS (5)
  - VENOUS OCCLUSION [None]
  - CORONARY ARTERY DISEASE [None]
  - MYOCARDIAL INFARCTION [None]
  - DRUG INEFFECTIVE [None]
  - HYPERCHOLESTEROLAEMIA [None]
